FAERS Safety Report 24186926 (Version 5)
Quarter: 2024Q4

REPORT INFORMATION
  Report Type: Report from Study
  Country: US (occurrence: US)
  Receive Date: 20240808
  Receipt Date: 20241223
  Transmission Date: 20250115
  Serious: Yes (Hospitalization, Other)
  Sender: INSMED
  Company Number: US-INSMED, INC.-2024-03058-US

PATIENT
  Sex: Female

DRUGS (2)
  1. ARIKAYCE [Suspect]
     Active Substance: AMIKACIN
     Indication: Mycobacterium avium complex infection
     Dosage: 590 MILLIGRAM, QD
     Route: 055
     Dates: start: 202203
  2. ARIKAYCE [Suspect]
     Active Substance: AMIKACIN
     Indication: Infection
     Dosage: 590 MILLIGRAM, NOT TAKING ARIKAYCE EVERY DAY
     Route: 055
     Dates: end: 2024

REACTIONS (6)
  - Hospitalisation [Unknown]
  - Loss of consciousness [Unknown]
  - T-cell lymphocytosis [Not Recovered/Not Resolved]
  - Pneumonia [Unknown]
  - Intentional product misuse [Unknown]
  - Therapy interrupted [Unknown]
